FAERS Safety Report 21966877 (Version 1)
Quarter: 2023Q1

REPORT INFORMATION
  Report Type: Other
  Country: US (occurrence: US)
  Receive Date: 20230208
  Receipt Date: 20230208
  Transmission Date: 20230418
  Serious: Yes (Hospitalization)
  Sender: FDA-Public Use
  Company Number: US-TRAVERE-2022TVT00387

PATIENT
  Age: 15 Year
  Sex: Male

DRUGS (2)
  1. CHOLIC ACID [Suspect]
     Active Substance: CHOLIC ACID
     Indication: Liver disorder
     Dosage: 250 MG ORALLY AS DIRECTED
     Route: 048
     Dates: start: 20220306
  2. CHOLIC ACID [Suspect]
     Active Substance: CHOLIC ACID
     Dosage: 50 MG ORALLY AS DIRECTED
     Route: 048
     Dates: start: 20220306

REACTIONS (1)
  - Blood albumin decreased [Unknown]
